FAERS Safety Report 22093440 (Version 6)
Quarter: 2023Q2

REPORT INFORMATION
  Report Type: Report from Study
  Country: US (occurrence: US)
  Receive Date: 20230314
  Receipt Date: 20230615
  Transmission Date: 20230722
  Serious: No
  Sender: FDA-Public Use
  Company Number: US-002147023-NVSC2023US058418

PATIENT
  Sex: Male

DRUGS (5)
  1. ENTRESTO [Suspect]
     Active Substance: SACUBITRIL\VALSARTAN
     Indication: Product used for unknown indication
     Dosage: 1 DOSAGE FORM, BID (49/51 MG)
     Route: 065
     Dates: start: 202212
  2. ENTRESTO [Suspect]
     Active Substance: SACUBITRIL\VALSARTAN
     Dosage: 1 DOSAGE FORM, BID (97/103 MG)
     Route: 048
  3. JARDIANCE [Suspect]
     Active Substance: EMPAGLIFLOZIN
     Indication: Product used for unknown indication
     Dosage: UNK
     Route: 065
  4. CALCIUM [Concomitant]
     Active Substance: CALCIUM
     Indication: Product used for unknown indication
     Dosage: UNK
     Route: 065
  5. MAGNESIUM [Concomitant]
     Active Substance: MAGNESIUM
     Indication: Product used for unknown indication
     Dosage: UNK
     Route: 065

REACTIONS (16)
  - Libido decreased [Unknown]
  - Arthralgia [Unknown]
  - Weight decreased [Unknown]
  - Dental discomfort [Unknown]
  - Blood sodium decreased [Unknown]
  - Tooth abscess [Unknown]
  - Pain [Unknown]
  - Dehydration [Unknown]
  - Muscle spasms [Unknown]
  - Memory impairment [Unknown]
  - Fatigue [Unknown]
  - Diarrhoea [Unknown]
  - Abdominal discomfort [Unknown]
  - Headache [Unknown]
  - Dizziness [Recovered/Resolved]
  - Wrong technique in product usage process [Unknown]
